FAERS Safety Report 10076073 (Version 1)
Quarter: 2014Q2

REPORT INFORMATION
  Report Type: Spontaneous
  Country: US (occurrence: None)
  Receive Date: 20140410
  Receipt Date: 20140410
  Transmission Date: 20141212
  Serious: Yes (Other)
  Sender: FDA-Public Use
  Company Number: AUR-APL-2014-04143

PATIENT
  Sex: Male
  Weight: 81.65 kg

DRUGS (1)
  1. TRIMETHOPRIM+SULFAMETHOXAZOLE [Suspect]
     Indication: PROSTATE INFECTION
     Dates: start: 20140312, end: 20140319

REACTIONS (4)
  - Asthenia [None]
  - Fatigue [None]
  - Tremor [None]
  - Dyspnoea [None]
